FAERS Safety Report 25687724 (Version 2)
Quarter: 2025Q3

REPORT INFORMATION
  Report Type: Spontaneous
  Country: US (occurrence: US)
  Receive Date: 20250817
  Receipt Date: 20250905
  Transmission Date: 20251021
  Serious: No
  Sender: SANOFI AVENTIS
  Company Number: US-SANOFI-02620662

PATIENT
  Age: 19 Year
  Sex: Female
  Weight: 58.64 kg

DRUGS (3)
  1. MENQUADFI [Suspect]
     Active Substance: MENINGOCOCCAL (GROUPS A, C, Y, W) CONJUGATE VACCINE
     Indication: Meningococcal immunisation
     Route: 030
     Dates: start: 20250811
  2. TUBERSOL [Suspect]
     Active Substance: TUBERCULIN PURIFIED PROTEIN DERIVATIVE
     Indication: Immunisation
     Dates: start: 20250811
  3. GARDASIL 9 [Concomitant]
     Active Substance: HUMAN PAPILLOMAVIRUS TYPE 11 L1 CAPSID PROTEIN ANTIGEN\HUMAN PAPILLOMAVIRUS TYPE 16 L1 CAPSID PROTEI
     Indication: Product used for unknown indication

REACTIONS (5)
  - Pain in extremity [Recovered/Resolved]
  - Rash macular [Recovered/Resolved]
  - Vaccination site pain [Recovered/Resolved]
  - Incorrect route of product administration [Unknown]
  - Extra dose administered [Unknown]

NARRATIVE: CASE EVENT DATE: 20250801
